FAERS Safety Report 8663636 (Version 3)
Quarter: 2013Q1

REPORT INFORMATION
  Report Type: Spontaneous
  Country: BR (occurrence: BR)
  Receive Date: 20120713
  Receipt Date: 20130211
  Transmission Date: 20140127
  Serious: Yes (Death, Other)
  Sender: FDA-Public Use
  Company Number: BR-AMGEN-BRASP2012041902

PATIENT
  Age: 76 Year
  Sex: Female
  Weight: 70 kg

DRUGS (7)
  1. ENBREL [Suspect]
     Indication: RHEUMATOID ARTHRITIS
     Dosage: 50 MG, ONCE WEEKLY
     Route: 058
  2. ENBREL [Suspect]
     Dosage: 50 MG, 1X/WEEK
     Route: 058
     Dates: start: 2011, end: 201207
  3. DIGESAN                            /00576701/ [Concomitant]
     Dosage: UNK
  4. OMEPRAZOLE [Concomitant]
     Indication: GASTRIC DISORDER
     Dosage: UNK
  5. CORTICORTEN [Concomitant]
     Dosage: UNK
  6. CODEINE PHOSPHATE [Concomitant]
     Dosage: UNK
  7. CODEIN [Concomitant]
     Dosage: UNK

REACTIONS (14)
  - Death [Fatal]
  - Throat cancer [Unknown]
  - Cataract [Unknown]
  - Swelling face [Unknown]
  - Mouth haemorrhage [Unknown]
  - Oedema mouth [Unknown]
  - Headache [Unknown]
  - Oropharyngeal pain [Unknown]
  - Neck pain [Unknown]
  - Local swelling [Unknown]
  - Gait disturbance [Unknown]
  - Back pain [Unknown]
  - Dysphagia [Unknown]
  - Pain [Unknown]
